FAERS Safety Report 5724466-X (Version None)
Quarter: 2008Q2

REPORT INFORMATION
  Report Type: 
  Country: None (occurrence: None)
  Receive Date: 20080429
  Receipt Date: 20080415
  Transmission Date: 20081010
  Serious: Yes (Hospitalization)
  Sender: FDA-Public Use
  Company Number: E2090-00423-SPO-JP

PATIENT
  Age: 66 Year
  Sex: Female

DRUGS (19)
  1. EXCEGRAN (ZONISAMIDE) [Suspect]
     Indication: PARKINSON'S DISEASE
     Dosage: 200 MG, ORAL
     Route: 048
     Dates: start: 20070822
  2. DOPS (DROXIDOPA) [Suspect]
     Dosage: 200 MG, ORAL; 600 MG, ORAL; 300 MG, ORAL
     Route: 048
     Dates: start: 20021024, end: 20030620
  3. DOPS (DROXIDOPA) [Suspect]
     Dosage: 200 MG, ORAL; 600 MG, ORAL; 300 MG, ORAL
     Route: 048
     Dates: start: 20060608, end: 20070304
  4. DOPS (DROXIDOPA) [Suspect]
     Dosage: 200 MG, ORAL; 600 MG, ORAL; 300 MG, ORAL
     Route: 048
     Dates: start: 20070305, end: 20080402
  5. DOPS (DROXIDOPA) [Suspect]
     Dosage: 200 MG, ORAL; 600 MG, ORAL; 300 MG, ORAL
     Route: 048
     Dates: start: 20080403, end: 20080405
  6. DOPS (DROXIDOPA) [Suspect]
     Dosage: 200 MG, ORAL; 600 MG, ORAL; 300 MG, ORAL
     Route: 048
     Dates: start: 20080406
  7. PURSENNID (SENNA LEAF) [Concomitant]
  8. SINEMET [Suspect]
     Indication: PARKINSON'S DISEASE
     Dosage: 450 MG, ORAL; 600 MG, ORAL; 550 MG, ORAL; 450 MG, ORAL
     Route: 048
     Dates: start: 20021024, end: 20030620
  9. SINEMET [Suspect]
     Indication: PARKINSON'S DISEASE
     Dosage: 450 MG, ORAL; 600 MG, ORAL; 550 MG, ORAL; 450 MG, ORAL
     Route: 048
     Dates: start: 20060608, end: 20060911
  10. SINEMET [Suspect]
     Indication: PARKINSON'S DISEASE
     Dosage: 450 MG, ORAL; 600 MG, ORAL; 550 MG, ORAL; 450 MG, ORAL
     Route: 048
     Dates: start: 20060912, end: 20070304
  11. SINEMET [Suspect]
     Indication: PARKINSON'S DISEASE
     Dosage: 450 MG, ORAL; 600 MG, ORAL; 550 MG, ORAL; 450 MG, ORAL
     Route: 048
     Dates: start: 20070406
  12. BI SIPROL (PRAMIPEXOLE DIHYDROCHLORIDE) [Suspect]
     Indication: PARKINSON'S DISEASE
     Dosage: 3 MG, ORAL; 4.5 MG, ORAL
     Route: 048
     Dates: start: 20060801, end: 20070417
  13. BI SIPROL (PRAMIPEXOLE DIHYDROCHLORIDE) [Suspect]
     Indication: PARKINSON'S DISEASE
     Dosage: 3 MG, ORAL; 4.5 MG, ORAL
     Route: 048
     Dates: start: 20070418
  14. SYMMETREL [Suspect]
     Indication: PARKINSON'S DISEASE
     Dosage: 150 MG, ORAL
     Route: 048
     Dates: start: 20070315
  15. ALSETRIN (PRAVASTATIN SODIUM) [Suspect]
     Indication: HYPERLIPIDAEMIA
     Dosage: 10 MG, ORAL
     Route: 048
     Dates: start: 20070305
  16. BLADDERON (FLAVOXATE HYDROCHLORIDE) [Concomitant]
  17. YOKU-KAN-SAN (YOKUKAN-SAN) [Concomitant]
  18. REQUIP (ROPINROLE HYDROCHLORIDE) [Concomitant]
  19. CINAL (CINAL) [Concomitant]

REACTIONS (14)
  - ARTHRALGIA [None]
  - ARTICULAR CALCIFICATION [None]
  - CHONDROCALCINOSIS PYROPHOSPHATE [None]
  - DRY SKIN [None]
  - DYSSTASIA [None]
  - ERYTHROMELALGIA [None]
  - GAIT DISTURBANCE [None]
  - HYPOAESTHESIA [None]
  - PAIN IN EXTREMITY [None]
  - PIGMENTATION DISORDER [None]
  - SKIN EXFOLIATION [None]
  - SKIN HYPERTROPHY [None]
  - SKIN NECROSIS [None]
  - SKIN WARM [None]
